FAERS Safety Report 11193672 (Version 1)
Quarter: 2015Q2

REPORT INFORMATION
  Report Type: Spontaneous
  Country: US (occurrence: US)
  Receive Date: 20150616
  Receipt Date: 20150616
  Transmission Date: 20150821
  Serious: No
  Sender: FDA-Public Use
  Company Number: US-TAKEDA-2014MPI001671

PATIENT
  Age: 58 Year
  Sex: Female
  Weight: 107.48 kg

DRUGS (1)
  1. VELCADE [Suspect]
     Active Substance: BORTEZOMIB
     Indication: PLASMA CELL MYELOMA
     Dosage: 2.7 MG, 2/WEEK WITH A 10 DAY REST PERIOD
     Route: 058
     Dates: start: 201404

REACTIONS (1)
  - Local reaction [Not Recovered/Not Resolved]

NARRATIVE: CASE EVENT DATE: 20140605
